FAERS Safety Report 6055660-9 (Version None)
Quarter: 2009Q1

REPORT INFORMATION
  Report Type: 
  Country: None (occurrence: None)
  Receive Date: 20090128
  Receipt Date: 20090116
  Transmission Date: 20090719
  Serious: Yes (Hospitalization)
  Sender: FDA-Public Use
  Company Number: FR-PFIZER INC-2009157533

PATIENT
  Sex: Female
  Weight: 53 kg

DRUGS (3)
  1. SUNITINIB MALATE [Suspect]
     Dosage: UNK
     Dates: start: 20081125
  2. IRBESARTAN [Concomitant]
     Dates: start: 20081216
  3. ACEBUTOLOL CHLORHYDRATE [Concomitant]

REACTIONS (3)
  - AGITATION [None]
  - APHASIA [None]
  - CONFUSIONAL STATE [None]
